FAERS Safety Report 21624126 (Version 1)
Quarter: 2022Q4

REPORT INFORMATION
  Report Type: Spontaneous
  Country: NL (occurrence: NL)
  Receive Date: 20221121
  Receipt Date: 20221121
  Transmission Date: 20230112
  Serious: Yes (Other)
  Sender: FDA-Public Use
  Company Number: None

PATIENT
  Sex: Female

DRUGS (1)
  1. DEXAMETHASONE [Suspect]
     Active Substance: DEXAMETHASONE
     Indication: Ear inflammation
     Dosage: 3 TIMES A DAY 3 TIMES
     Route: 065
     Dates: start: 20150301

REACTIONS (2)
  - Tympanic membrane perforation [Not Recovered/Not Resolved]
  - Product substitution issue [Unknown]
